FAERS Safety Report 5533504-9 (Version None)
Quarter: 2007Q4

REPORT INFORMATION
  Report Type: 
  Country: None (occurrence: None)
  Receive Date: 20071120
  Receipt Date: 20070911
  Transmission Date: 20080405
  Serious: No
  Sender: FDA-Public Use
  Company Number: WAES 0709USA01574

PATIENT
  Age: 71 Year
  Sex: Male

DRUGS (13)
  1. JANUVIA [Suspect]
     Indication: DIABETES MELLITUS
     Dosage: 100 MG/DAILY/PO
     Route: 048
     Dates: start: 20070601
  2. ALTACE [Concomitant]
  3. COLACE [Concomitant]
  4. COREG [Concomitant]
  5. FEOSOL [Concomitant]
  6. NEXIUM [Concomitant]
  7. VYTORIN [Concomitant]
  8. AMLDOIPINE BESYLATE [Concomitant]
  9. ASPIRIN [Concomitant]
  10. FOLIC ACID [Concomitant]
  11. HYDROCHLOROTHIAZIDE [Concomitant]
  12. METFORMIN HCL [Concomitant]
  13. OMEGA-3 MARINE TRIGLYCERIDES [Concomitant]

REACTIONS (2)
  - BLOOD GLUCOSE INCREASED [None]
  - DRUG INEFFECTIVE [None]
